FAERS Safety Report 6001314-4 (Version None)
Quarter: 2008Q4

REPORT INFORMATION
  Report Type: 
  Country: None (occurrence: None)
  Receive Date: 20081215
  Receipt Date: 20081205
  Transmission Date: 20090506
  Serious: Yes (Disabling)
  Sender: FDA-Public Use
  Company Number: PHEH2008US10390

PATIENT
  Age: 65 Year
  Sex: Female

DRUGS (1)
  1. RECLAST [Suspect]
     Indication: OSTEOPOROSIS
     Dosage: UNK
     Route: 042
     Dates: start: 20080901

REACTIONS (5)
  - ANXIETY [None]
  - DEHYDRATION [None]
  - MUSCULAR WEAKNESS [None]
  - MYALGIA [None]
  - TEARFULNESS [None]
